FAERS Safety Report 8222428-4 (Version None)
Quarter: 2012Q1

REPORT INFORMATION
  Report Type: 
  Country: None (occurrence: None)
  Receive Date: 20120320
  Receipt Date: 20120314
  Transmission Date: 20120608
  Serious: Yes (Hospitalization)
  Sender: FDA-Public Use
  Company Number: BR-JHP PHARMACEUTICALS, LLC-JHP201200161

PATIENT
  Age: 15 Month
  Sex: Male

DRUGS (3)
  1. ANALGESICS [Concomitant]
  2. SEDATIVES [Concomitant]
  3. KETALAR [Suspect]
     Dosage: 200-600 MG DAILY
     Route: 042

REACTIONS (1)
  - EXTRAPYRAMIDAL DISORDER [None]
